FAERS Safety Report 9735107 (Version 2)
Quarter: 2013Q4

REPORT INFORMATION
  Report Type: Spontaneous
  Country: US (occurrence: None)
  Receive Date: 20131204
  Receipt Date: 20131211
  Transmission Date: 20140711
  Serious: Yes (Death, Hospitalization)
  Sender: FDA-Public Use
  Company Number: UTC-040878

PATIENT
  Age: 77 Year
  Sex: Male
  Weight: 59 kg

DRUGS (1)
  1. REMODULIN [Suspect]
     Indication: PULMONARY ARTERIAL HYPERTENSION
     Dosage: 149.76 UG/KG (0.104 UG/KG,1 IN 1 MIN) , SUBCUTANEOUS
     Route: 058
     Dates: start: 20100427

REACTIONS (5)
  - Body temperature increased [None]
  - Dyspnoea [None]
  - Confusional state [None]
  - Septic shock [None]
  - Bacteraemia [None]
